FAERS Safety Report 6458808-7 (Version None)
Quarter: 2009Q4

REPORT INFORMATION
  Report Type: 
  Country: None (occurrence: None)
  Receive Date: 20091127
  Receipt Date: 20091120
  Transmission Date: 20100525
  Serious: Yes (Life-Threatening, Hospitalization, Disabling)
  Sender: FDA-Public Use
  Company Number: PL-BRISTOL-MYERS SQUIBB COMPANY-13075643

PATIENT
  Age: 76 Year
  Sex: Male
  Weight: 80 kg

DRUGS (9)
  1. PLACEBO [Suspect]
     Indication: HYPERTENSION
     Dates: start: 20050427, end: 20050728
  2. CLOPIDOGREL BISULFATE [Suspect]
     Indication: PROPHYLAXIS
     Dates: start: 20050427, end: 20050730
  3. ASPIRIN [Suspect]
     Indication: PROPHYLAXIS
     Dates: start: 20050427, end: 20050730
  4. CALCIUM DOBESILATE [Concomitant]
  5. LACIDIPINE [Concomitant]
  6. PRESTARIUM [Concomitant]
  7. SOTALOL HCL [Concomitant]
  8. RANITIDINE [Concomitant]
  9. PENTOXIFYLLINE [Concomitant]

REACTIONS (1)
  - HEPATOCELLULAR INJURY [None]
